FAERS Safety Report 11789220 (Version 2)
Quarter: 2015Q4

REPORT INFORMATION
  Report Type: Spontaneous
  Country: US (occurrence: US)
  Receive Date: 20151201
  Receipt Date: 20151218
  Transmission Date: 20160305
  Serious: No
  Sender: FDA-Public Use
  Company Number: US-ASTRAZENECA-2015SF09453

PATIENT
  Age: 27041 Day
  Sex: Male
  Weight: 119.3 kg

DRUGS (15)
  1. CALCIUM/MAGNESIUM/VITAMIN D [Concomitant]
     Dosage: CALCIUM 333MG / MAGNESIUM 133 / VITAMIN D 200 DAILY
  2. ENALAPRIL [Concomitant]
     Active Substance: ENALAPRIL
     Route: 048
  3. ASPIRIN. [Concomitant]
     Active Substance: ASPIRIN
     Route: 048
  4. FLOMAX [Concomitant]
     Active Substance: TAMSULOSIN HYDROCHLORIDE
     Dosage: TWO TIMES A DAY
     Route: 048
  5. INSULIN [Concomitant]
     Active Substance: INSULIN NOS
     Dosage: CUTTING DOWN ON INSULIN
  6. BYDUREON [Suspect]
     Active Substance: EXENATIDE
     Indication: TYPE 2 DIABETES MELLITUS
     Route: 058
  7. METANX [Concomitant]
     Active Substance: LEVOMEFOLATE CALCIUM\METHYLCOBALAMIN\PYRIDOXAL PHOSPHATE ANHYDROUS
     Indication: VEIN DISORDER
     Dosage: 1 DAILY
     Route: 048
  8. NOVOLIN INSULIN [Concomitant]
     Indication: TYPE 2 DIABETES MELLITUS
     Dosage: 70; 70/30; TWO TIMES A DAY
     Route: 058
  9. METFORMIN [Concomitant]
     Active Substance: METFORMIN HYDROCHLORIDE
  10. DOXYLAMINE SUCCINATE. [Concomitant]
     Active Substance: DOXYLAMINE SUCCINATE
  11. SIMVASTATIN. [Concomitant]
     Active Substance: SIMVASTATIN
     Route: 048
  12. OMEGA 3 [Concomitant]
     Active Substance: OMEGA-3 FATTY ACIDS
     Dosage: 2800; TWO TIMES A ; 4 1400MG TABLETS TWO TABLETS BID
     Route: 048
  13. PLAVIX [Concomitant]
     Active Substance: CLOPIDOGREL BISULFATE
     Route: 048
  14. GABAPENTIN. [Concomitant]
     Active Substance: GABAPENTIN
     Route: 048
  15. FENOFIBRATE. [Concomitant]
     Active Substance: FENOFIBRATE
     Route: 058

REACTIONS (11)
  - Blood glucose decreased [Unknown]
  - Asthenia [Unknown]
  - Drug dose omission [Unknown]
  - Memory impairment [Unknown]
  - Halo vision [Not Recovered/Not Resolved]
  - Injection site mass [Not Recovered/Not Resolved]
  - Dizziness [Unknown]
  - Product quality issue [Unknown]
  - Body height decreased [Unknown]
  - Injection site pain [Not Recovered/Not Resolved]
  - Blood glucose increased [Not Recovered/Not Resolved]

NARRATIVE: CASE EVENT DATE: 20151105
